FAERS Safety Report 12754755 (Version 5)
Quarter: 2017Q1

REPORT INFORMATION
  Report Type: Spontaneous
  Country: JP (occurrence: JP)
  Receive Date: 20160915
  Receipt Date: 20170303
  Transmission Date: 20170428
  Serious: Yes (Life-Threatening, Hospitalization, Other)
  Sender: FDA-Public Use
  Company Number: JP-009507513-1609JPN005024

PATIENT
  Age: 78 Year
  Sex: Female
  Weight: 52 kg

DRUGS (14)
  1. MYTELASE [Suspect]
     Active Substance: AMBENONIUM CHLORIDE
     Dosage: 5 MG, QD
     Route: 048
     Dates: start: 20160318
  2. PROPOFOL. [Concomitant]
     Active Substance: PROPOFOL
     Indication: GENERAL ANAESTHESIA
     Dosage: 1250 MG, UNK
     Route: 042
     Dates: start: 20160317, end: 20160317
  3. MYTELASE [Suspect]
     Active Substance: AMBENONIUM CHLORIDE
     Indication: MYASTHENIA GRAVIS
     Dosage: 5 MG, QD
     Route: 048
     Dates: end: 20160316
  4. EPHEDRIN [Concomitant]
     Active Substance: EPHEDRINE HYDROCHLORIDE
     Indication: GENERAL ANAESTHESIA
     Dosage: 20 MG, UNK
     Route: 042
     Dates: start: 20160317, end: 20160317
  5. DONEPEZIL HYDROCHLORIDE OD [Concomitant]
     Indication: DEMENTIA ALZHEIMER^S TYPE
     Dosage: 5 MG, QD
     Route: 048
     Dates: end: 20160316
  6. ESLAX INTRAVENOUS 25MG/2.5ML [Suspect]
     Active Substance: ROCURONIUM BROMIDE
     Indication: NEUROMUSCULAR BLOCKING THERAPY
     Dosage: 70 MG, UNK (STRENGTH 25MG/2.5ML)
     Route: 042
     Dates: start: 20160317, end: 20160317
  7. ULTIVA [Concomitant]
     Active Substance: REMIFENTANIL HYDROCHLORIDE
     Indication: GENERAL ANAESTHESIA
     Dosage: 7.0 MG, UNK
     Route: 042
     Dates: start: 20160317, end: 20160317
  8. FENTANYL. [Concomitant]
     Active Substance: FENTANYL
     Indication: GENERAL ANAESTHESIA
     Dosage: 0.2 MG, UNK
     Route: 042
     Dates: start: 20160317, end: 20160317
  9. MEMANTINE HYDROCHLORIDE. [Concomitant]
     Active Substance: MEMANTINE HYDROCHLORIDE
     Indication: DEMENTIA ALZHEIMER^S TYPE
     Dosage: 5 MG, BID
     Route: 048
     Dates: end: 20160316
  10. MEMANTINE HYDROCHLORIDE. [Concomitant]
     Active Substance: MEMANTINE HYDROCHLORIDE
     Dosage: 5 MG, BID
     Route: 048
     Dates: start: 20160318
  11. DONEPEZIL HYDROCHLORIDE OD [Concomitant]
     Dosage: 5 MG, QD
     Route: 048
     Dates: start: 20160318
  12. FUROSEMIDE. [Concomitant]
     Active Substance: FUROSEMIDE
     Indication: POLYURIA
     Dosage: 40 MG, QD
     Route: 048
     Dates: end: 20160316
  13. FUROSEMIDE. [Concomitant]
     Active Substance: FUROSEMIDE
     Dosage: 40 MG, QD
     Route: 048
     Dates: start: 20160318
  14. BRIDION [Suspect]
     Active Substance: SUGAMMADEX
     Indication: NEUROMUSCULAR BLOCKADE REVERSAL
     Dosage: 200 MG, UNK
     Route: 042
     Dates: start: 20160317, end: 20160317

REACTIONS (2)
  - Pneumonia aspiration [Recovering/Resolving]
  - Myasthenia gravis [Recovered/Resolved]

NARRATIVE: CASE EVENT DATE: 20160322
